FAERS Safety Report 20541131 (Version 1)
Quarter: 2022Q1

REPORT INFORMATION
  Report Type: Spontaneous
  Country: US (occurrence: None)
  Receive Date: 20220302
  Receipt Date: 20220302
  Transmission Date: 20220424
  Serious: No
  Sender: FDA-Public Use
  Company Number: None

PATIENT
  Age: 79 Year
  Sex: Female
  Weight: 89.81 kg

DRUGS (1)
  1. SULFAMETHOXAZOLE\TRIMETHOPRIM [Suspect]
     Active Substance: SULFAMETHOXAZOLE\TRIMETHOPRIM
     Indication: Dysuria
     Dosage: OTHER STRENGTH : 400-80MG ;?OTHER QUANTITY : 1 PILL ;?FREQUENCY : TWICE A DAY;?
     Route: 048
     Dates: start: 20200408, end: 20200410

REACTIONS (9)
  - Throat irritation [None]
  - Pharyngeal paraesthesia [None]
  - Vulvovaginal burning sensation [None]
  - Genital paraesthesia [None]
  - Dysuria [None]
  - Burning sensation [None]
  - Paraesthesia [None]
  - Renal function test abnormal [None]
  - Insomnia [None]

NARRATIVE: CASE EVENT DATE: 20200408
